FAERS Safety Report 7472852-2 (Version None)
Quarter: 2011Q2

REPORT INFORMATION
  Report Type: 
  Country: None (occurrence: None)
  Receive Date: 20110503
  Receipt Date: 20110425
  Transmission Date: 20111010
  Serious: Yes (Hospitalization)
  Sender: FDA-Public Use
  Company Number: 2011SP000745

PATIENT
  Age: 43 Year
  Sex: Male

DRUGS (3)
  1. EFFEXOR [Concomitant]
  2. SEROQUEL [Concomitant]
  3. SAPHRIS [Suspect]
     Indication: MAJOR DEPRESSION
     Dosage: 5 MG;QD;SL
     Route: 060
     Dates: start: 20101220, end: 20101223

REACTIONS (6)
  - THYROID DISORDER [None]
  - DROOLING [None]
  - DYSPNOEA [None]
  - DYSPHAGIA [None]
  - DYSKINESIA [None]
  - TONGUE DISORDER [None]
